FAERS Safety Report 7859980-4 (Version None)
Quarter: 2011Q4

REPORT INFORMATION
  Report Type: 
  Country: None (occurrence: None)
  Receive Date: 20111026
  Receipt Date: 20111026
  Transmission Date: 20120403
  Serious: Yes (Life-Threatening, Hospitalization, Other)
  Sender: FDA-Public Use
  Company Number: None

PATIENT
  Sex: Female
  Weight: 63.5036 kg

DRUGS (6)
  1. HUMIRA [Suspect]
     Indication: RHEUMATOID ARTHRITIS
     Dosage: 1/S DOSE 3 DOSES FULL DOSE EVERY 2 W
     Dates: start: 20110120
  2. HUMIRA [Suspect]
     Indication: RHEUMATOID ARTHRITIS
     Dosage: 1/S DOSE 3 DOSES FULL DOSE EVERY 2 W
     Dates: start: 20110825
  3. HUMIRA [Suspect]
     Indication: RHEUMATOID ARTHRITIS
     Dosage: 1/S DOSE 3 DOSES FULL DOSE EVERY 2 W
     Dates: start: 20110908
  4. HUMIRA [Suspect]
     Indication: RHEUMATOID ARTHRITIS
     Dosage: 1/S DOSE 3 DOSES FULL DOSE EVERY 2 W
     Dates: start: 20110923
  5. HUMIRA [Suspect]
     Indication: RHEUMATOID ARTHRITIS
     Dosage: 1/S DOSE 3 DOSES FULL DOSE EVERY 2 W
     Dates: start: 20110801
  6. HUMIRA [Suspect]
     Indication: RHEUMATOID ARTHRITIS
     Dosage: 1/S DOSE 3 DOSES FULL DOSE EVERY 2 W
     Dates: start: 20110721

REACTIONS (5)
  - DYSPNOEA [None]
  - TOXICITY TO VARIOUS AGENTS [None]
  - CHEST PAIN [None]
  - HYPERSENSITIVITY [None]
  - ASTHENIA [None]
